FAERS Safety Report 14151429 (Version 3)
Quarter: 2017Q4

REPORT INFORMATION
  Report Type: Spontaneous
  Country: US (occurrence: US)
  Receive Date: 20171102
  Receipt Date: 20171212
  Transmission Date: 20180321
  Serious: No
  Sender: FDA-Public Use
  Company Number: US-PFIZER INC-2017469423

PATIENT
  Age: 78 Year
  Sex: Male
  Weight: 81.65 kg

DRUGS (3)
  1. VIAGRA [Suspect]
     Active Substance: SILDENAFIL CITRATE
     Dosage: UNK (1 PILL THE NIGHT BEFORE, 1 PILL FOUR HOURS BEFORE AND 1 PILL 1 HOUR BEFORE SEXUAL ACTIVITY)
  2. VIAGRA [Suspect]
     Active Substance: SILDENAFIL CITRATE
     Indication: ERECTILE DYSFUNCTION
     Dosage: AT 100MG  AS NEEDED (ONCE OR DAILY,  1/ 2  TABLET)
     Route: 048
     Dates: start: 20110315
  3. OMEPRAZOLE. [Concomitant]
     Active Substance: OMEPRAZOLE
     Indication: DYSPEPSIA
     Dosage: 20 MG, 1X/DAY

REACTIONS (2)
  - Drug effect delayed [Not Recovered/Not Resolved]
  - Intentional product use issue [Unknown]
